FAERS Safety Report 4837693-0 (Version None)
Quarter: 2005Q4

REPORT INFORMATION
  Report Type: 
  Country: None (occurrence: None)
  Receive Date: 20051128
  Receipt Date: 20050718
  Transmission Date: 20060501
  Serious: Yes (Hospitalization, Other)
  Sender: FDA-Public Use
  Company Number: US-MERCK-0507USA02360

PATIENT
  Age: 68 Year
  Sex: Female
  Weight: 82 kg

DRUGS (10)
  1. VIOXX [Suspect]
     Indication: BACK PAIN
     Route: 048
     Dates: start: 20010401, end: 20040930
  2. VIOXX [Suspect]
     Indication: ARTHRALGIA
     Route: 048
     Dates: start: 20010401, end: 20040930
  3. ATENOLOL [Concomitant]
     Route: 065
  4. LIPITOR [Concomitant]
     Route: 065
     Dates: start: 19990209
  5. LASIX [Concomitant]
     Route: 065
     Dates: start: 19921001
  6. NITROSTAT [Concomitant]
     Route: 065
  7. XALATAN [Concomitant]
     Route: 065
  8. SYNTHROID [Concomitant]
     Route: 065
  9. ACETAMINOPHEN [Concomitant]
     Route: 065
  10. VICODIN [Concomitant]
     Route: 065
     Dates: start: 19971202

REACTIONS (12)
  - CAROTID ARTERY DISEASE [None]
  - CEREBROVASCULAR ACCIDENT [None]
  - DIABETES MELLITUS INSULIN-DEPENDENT [None]
  - GALLBLADDER DISORDER [None]
  - GASTROOESOPHAGEAL REFLUX DISEASE [None]
  - GLAUCOMA [None]
  - HYPERTENSION [None]
  - MYOCARDIAL INFARCTION [None]
  - NEUROPATHY [None]
  - NEUROPATHY PERIPHERAL [None]
  - OBESITY [None]
  - POLYTRAUMATISM [None]
